FAERS Safety Report 19832289 (Version 3)
Quarter: 2025Q4

REPORT INFORMATION
  Report Type: Spontaneous
  Country: US (occurrence: US)
  Receive Date: 20210914
  Receipt Date: 20251002
  Transmission Date: 20260118
  Serious: No
  Sender: NOVARTIS
  Company Number: US-NOVARTISTESTPH-NVSC2021US207629

PATIENT
  Sex: Female

DRUGS (1)
  1. ADAKVEO [Suspect]
     Active Substance: CRIZANLIZUMAB-TMCA
     Indication: Sickle cell disease
     Dosage: UNK UNK, QMO (INTO BLOODSTREAM VIA VEIN)
     Route: 042

REACTIONS (3)
  - Pain [Unknown]
  - Arthralgia [Unknown]
  - Maternal exposure during pregnancy [Unknown]
